FAERS Safety Report 11747308 (Version 1)
Quarter: 2015Q4

REPORT INFORMATION
  Report Type: Report from Study
  Country: TR (occurrence: TR)
  Receive Date: 20151117
  Receipt Date: 20151117
  Transmission Date: 20160304
  Serious: Yes (Other)
  Sender: FDA-Public Use
  Company Number: TR-BAXTER-2015BAX061955

PATIENT

DRUGS (10)
  1. ATROPINE. [Suspect]
     Active Substance: ATROPINE
     Indication: FOETAL EXPOSURE TIMING UNSPECIFIED
     Route: 064
  2. TRAMADOL HYDROCHLORIDE. [Suspect]
     Active Substance: TRAMADOL HYDROCHLORIDE
     Indication: FOETAL EXPOSURE TIMING UNSPECIFIED
     Route: 064
  3. OXYTOCIN. [Suspect]
     Active Substance: OXYTOCIN
     Dosage: 10 IU/L OVER THE FIRST 24 HOURS AFTER DELIVERY
     Route: 042
  4. SEVOFLURANE. [Suspect]
     Active Substance: SEVOFLURANE
     Indication: FOETAL EXPOSURE TIMING UNSPECIFIED
     Dosage: 1-1.5 %
     Route: 064
  5. NEOSTIGMINE [Suspect]
     Active Substance: NEOSTIGMINE
     Indication: FOETAL EXPOSURE TIMING UNSPECIFIED
     Route: 064
  6. METHYLERGOBASINE MALEATE [Suspect]
     Active Substance: METHYLERGONOVINE MALEATE
     Indication: FOETAL EXPOSURE TIMING UNSPECIFIED
     Route: 064
  7. THIOPENTAL [Suspect]
     Active Substance: THIOPENTAL
     Indication: FOETAL EXPOSURE TIMING UNSPECIFIED
     Dosage: 4-5 MG/KG
     Route: 064
  8. ROCURONIUM [Suspect]
     Active Substance: ROCURONIUM BROMIDE
     Indication: FOETAL EXPOSURE TIMING UNSPECIFIED
     Route: 064
  9. NITROUS OXIDE. [Suspect]
     Active Substance: NITROUS OXIDE
     Indication: FOETAL EXPOSURE TIMING UNSPECIFIED
     Route: 064
  10. OXYTOCIN. [Suspect]
     Active Substance: OXYTOCIN
     Indication: FOETAL EXPOSURE TIMING UNSPECIFIED
     Dosage: 10 IU/L OVER THE FIRST 24 HOURS FOLLOWING DELIVERY
     Route: 064

REACTIONS (3)
  - Apgar score abnormal [Unknown]
  - Maternal drugs affecting foetus [None]
  - Foetal exposure during pregnancy [Recovered/Resolved]
